FAERS Safety Report 23204183 (Version 1)
Quarter: 2023Q4

REPORT INFORMATION
  Report Type: Spontaneous
  Country: US (occurrence: None)
  Receive Date: 20231120
  Receipt Date: 20231120
  Transmission Date: 20240110
  Serious: Yes (Other)
  Sender: FDA-Public Use
  Company Number: None

PATIENT
  Age: 68 Year
  Sex: Female
  Weight: 64.35 kg

DRUGS (6)
  1. BLINK TEARS [Suspect]
     Active Substance: POLYETHYLENE GLYCOL 400
     Indication: Dry eye
     Dosage: OTHER QUANTITY : 1 DROP(S);?
     Route: 047
     Dates: start: 20231002, end: 20231118
  2. Hydrolizide [Concomitant]
  3. ALLOPURINOL [Concomitant]
     Active Substance: ALLOPURINOL
  4. VITAMINS [Concomitant]
     Active Substance: VITAMINS
  5. BORON [Concomitant]
     Active Substance: BORON
  6. HERBALS\TURMERIC [Concomitant]
     Active Substance: HERBALS\TURMERIC

REACTIONS (1)
  - Eye irritation [None]

NARRATIVE: CASE EVENT DATE: 20231118
